FAERS Safety Report 4996600-0 (Version None)
Quarter: 2006Q2

REPORT INFORMATION
  Report Type: 
  Country: None (occurrence: None)
  Receive Date: 20060505
  Receipt Date: 20060425
  Transmission Date: 20061013
  Serious: Yes (Hospitalization, Other)
  Sender: FDA-Public Use
  Company Number: 2006056506

PATIENT
  Sex: Male
  Weight: 83.9154 kg

DRUGS (4)
  1. DILANTIN [Suspect]
     Indication: CONVULSION
     Dosage: 200MG IN MORNING, 300MG AT NIGHT (100 MG)
  2. METFORMIN [Concomitant]
  3. LIPITOR [Concomitant]
  4. VITAMINS (VITAMINS) [Concomitant]

REACTIONS (3)
  - ANTICONVULSANT DRUG LEVEL INCREASED [None]
  - CONVULSION [None]
  - PHARMACEUTICAL PRODUCT COMPLAINT [None]
